FAERS Safety Report 9500476 (Version 3)
Quarter: 2014Q2

REPORT INFORMATION
  Report Type: Spontaneous
  Country: US (occurrence: US)
  Receive Date: 20130905
  Receipt Date: 20140602
  Transmission Date: 20141212
  Serious: Yes (Other)
  Sender: FDA-Public Use
  Company Number: US-BAYER-2013-107201

PATIENT
  Age: 20 Year
  Sex: Female
  Weight: 85.73 kg

DRUGS (3)
  1. YAZ [Suspect]
     Dosage: UNK
     Dates: start: 2009, end: 2011
  2. HYDROCODONE W/ACETAMINOPHEN [Concomitant]
  3. IBUPROFEN [Concomitant]
     Dosage: 800 MG, UNK

REACTIONS (11)
  - Thrombosis [None]
  - Ovarian vein thrombosis [Recovered/Resolved]
  - Injury [None]
  - Pain [None]
  - Emotional distress [None]
  - Anxiety [None]
  - Psychological trauma [None]
  - Abortion spontaneous [None]
  - Abdominal pain upper [None]
  - Ovarian cyst [None]
  - Abortion spontaneous [None]
